FAERS Safety Report 9777935 (Version 1)
Quarter: 2013Q4

REPORT INFORMATION
  Report Type: Spontaneous
  Country: US (occurrence: US)
  Receive Date: 20131223
  Receipt Date: 20131223
  Transmission Date: 20140711
  Serious: No
  Sender: FDA-Public Use
  Company Number: US-B.I. PHARMACEUTICALS,INC./RIDGEFIELD-2013-BI-41370BP

PATIENT
  Sex: Female
  Weight: 95 kg

DRUGS (2)
  1. COMBIVENT [Suspect]
     Indication: ASTHMA
     Dosage: STRENGTH: 18 MCG / 103 MCG; DAILY DOSE: 144 MCG/824 MCG
     Route: 055
     Dates: start: 1997
  2. COMBIVENT [Suspect]
     Dosage: STRENGTH: 18 MCG / 103 MCG; DAILY DOSE: 216MCG/1236 MCG
     Route: 055
     Dates: end: 201310

REACTIONS (2)
  - Off label use [Unknown]
  - Prescribed overdose [Recovered/Resolved]
